FAERS Safety Report 25245928 (Version 1)
Quarter: 2025Q2

REPORT INFORMATION
  Report Type: Spontaneous
  Country: US (occurrence: None)
  Receive Date: 20250427
  Receipt Date: 20250427
  Transmission Date: 20250716
  Serious: Yes (Hospitalization)
  Sender: FDA-CTU
  Company Number: None

PATIENT
  Sex: Female

DRUGS (1)
  1. VUMERITY [Suspect]
     Active Substance: DIROXIMEL FUMARATE
     Indication: Multiple sclerosis
     Dosage: 462 MG TWICE A DAY ORAL
     Route: 048
     Dates: start: 20240228

REACTIONS (4)
  - Therapy cessation [None]
  - Staphylococcal infection [None]
  - Abscess [None]
  - Blood pressure measurement [None]
